FAERS Safety Report 25112702 (Version 1)
Quarter: 2025Q1

REPORT INFORMATION
  Report Type: Spontaneous
  Country: US (occurrence: None)
  Receive Date: 20250321
  Receipt Date: 20250321
  Transmission Date: 20250409
  Serious: Yes (Death, Life-Threatening, Other)
  Sender: FDA-CTU
  Company Number: None

PATIENT
  Age: 79 Year
  Sex: Female
  Weight: 119.6 kg

DRUGS (1)
  1. IRON DEXTRAN [Suspect]
     Active Substance: IRON DEXTRAN
     Indication: Iron deficiency anaemia
     Route: 042
     Dates: start: 20250313, end: 20250313

REACTIONS (4)
  - Cardio-respiratory arrest [None]
  - Pulseless electrical activity [None]
  - Pulmonary embolism [None]
  - Anaphylactic reaction [None]

NARRATIVE: CASE EVENT DATE: 20250313
